FAERS Safety Report 19407051 (Version 2)
Quarter: 2021Q2

REPORT INFORMATION
  Report Type: Spontaneous
  Country: US (occurrence: US)
  Receive Date: 20210611
  Receipt Date: 20210624
  Transmission Date: 20210717
  Serious: Yes (Other)
  Sender: FDA-Public Use
  Company Number: US-BIOVITRUM-2021US5043

PATIENT
  Sex: Female
  Weight: 10 kg

DRUGS (2)
  1. SYNAGIS [Suspect]
     Active Substance: PALIVIZUMAB
     Indication: SPINAL MUSCULAR ATROPHY
     Dosage: SYNAGIS 100MG/1ML VL LIQUID
     Route: 030
  2. EVRYSDI [Concomitant]
     Active Substance: RISDIPLAM
     Dosage: 60 MG/80 ML

REACTIONS (10)
  - Scoliosis [Unknown]
  - Respiratory failure [Unknown]
  - Pyrexia [Recovered/Resolved]
  - Hypotonia [Unknown]
  - Dysphagia [Unknown]
  - Tremor [Unknown]
  - Illness [Unknown]
  - Kyphosis [Unknown]
  - Cough [Unknown]
  - Muscular weakness [Unknown]
